FAERS Safety Report 19360465 (Version 5)
Quarter: 2021Q4

REPORT INFORMATION
  Report Type: Spontaneous
  Country: IN (occurrence: IN)
  Receive Date: 20210601
  Receipt Date: 20211110
  Transmission Date: 20220303
  Serious: Yes (Death, Hospitalization, Other)
  Sender: FDA-Public Use
  Company Number: IN-PFIZER INC-2019031596

PATIENT
  Age: 80 Year
  Sex: Female

DRUGS (19)
  1. PALBOCICLIB [Suspect]
     Active Substance: PALBOCICLIB
     Indication: Breast cancer metastatic
     Dosage: UNK
     Dates: start: 20180307
  2. PALBOCICLIB [Suspect]
     Active Substance: PALBOCICLIB
     Dosage: 100 MG, 1X/DAY
     Route: 048
     Dates: start: 20180307
  3. PALBOCICLIB [Suspect]
     Active Substance: PALBOCICLIB
     Dosage: 125 MG, CYCLIC (ONCE A DAY 21 DAYS/28 DAYS)
     Route: 048
     Dates: start: 20190415
  4. PALBOCICLIB [Suspect]
     Active Substance: PALBOCICLIB
     Dosage: 100 MG, CYCLIC (ONCE A 21 DAYS MONT X 3MT)
  5. PALBOCICLIB [Suspect]
     Active Substance: PALBOCICLIB
     Dosage: 100 MG, OD (X 21DAYS X 3MONTHS, 28DAYS )
     Route: 048
     Dates: start: 20210526
  6. AROMASIN [Suspect]
     Active Substance: EXEMESTANE
     Dosage: UNK
     Dates: start: 201506
  7. AROMASIN [Suspect]
     Active Substance: EXEMESTANE
     Dosage: 25 MG, DAILY
  8. FULVESTRANT [Concomitant]
     Active Substance: FULVESTRANT
     Dosage: UNK
     Dates: start: 202002
  9. FULVESTRANT [Concomitant]
     Active Substance: FULVESTRANT
     Dosage: 500 MG
     Route: 030
     Dates: start: 202002
  10. FULVESTRANT [Concomitant]
     Active Substance: FULVESTRANT
     Dosage: 500 MG (250MG-R,250MG-L)
     Route: 030
  11. SPORLAC [Concomitant]
     Dosage: UNK, 1X/DAY(0-1-0 X 1WK)
  12. NUCOXIA MR [Concomitant]
     Dosage: UNK, 2X/DAY(1-0-1 X 5 DAYS )
  13. SHELCAL [CALCIUM CARBONATE;COLECALCIFEROL] [Concomitant]
     Dosage: 500 MG, 1X/DAY(0-1-0 X 3MT)
  14. ZOLEDRONIC ACID [Concomitant]
     Active Substance: ZOLEDRONIC ACID
     Dosage: 4 MG, IN 100ML NS X 10 MIN
  15. TRAMADOL [Concomitant]
     Active Substance: TRAMADOL
     Dosage: 50 MG
  16. DULCOLAX (BISACODYL) [Concomitant]
     Active Substance: BISACODYL
     Dosage: UNK
  17. DUPHALAC [Concomitant]
     Active Substance: LACTULOSE
     Dosage: 15 ML, 2X/DAY(1-1 )
  18. PREGABALIN [Concomitant]
     Active Substance: PREGABALIN
     Dosage: UNK
  19. D-RISE [Concomitant]
     Dosage: 1 SACHET 1 GLASS WATER ONCE IN 2 WKS X 3 MTH

REACTIONS (12)
  - Death [Fatal]
  - Generalised tonic-clonic seizure [Recovering/Resolving]
  - Neoplasm progression [Unknown]
  - Arthralgia [Unknown]
  - Somnolence [Unknown]
  - Osteoporosis [Unknown]
  - Postictal state [Unknown]
  - Back pain [Unknown]
  - Blood pressure decreased [Unknown]
  - Cough [Unknown]
  - Nasopharyngitis [Unknown]
  - Dyspnoea exertional [Unknown]

NARRATIVE: CASE EVENT DATE: 20210901
